FAERS Safety Report 5317512-9 (Version None)
Quarter: 2007Q2

REPORT INFORMATION
  Report Type: 
  Country: None (occurrence: None)
  Receive Date: 20070507
  Receipt Date: 20070424
  Transmission Date: 20071010
  Serious: Yes (Hospitalization)
  Sender: FDA-Public Use
  Company Number: PHEH2007US05280

PATIENT
  Age: 52 Year
  Sex: Female

DRUGS (2)
  1. ZELNORM [Suspect]
     Route: 048
     Dates: start: 20060401, end: 20060501
  2. ZELNORM [Suspect]
     Dosage: UNK, UNK
     Route: 048
     Dates: start: 20061201

REACTIONS (6)
  - CHEST PAIN [None]
  - CORONARY ARTERIAL STENT INSERTION [None]
  - CORONARY ARTERY DISEASE [None]
  - DYSPNOEA [None]
  - GASTROINTESTINAL PAIN [None]
  - HYPERHIDROSIS [None]
